FAERS Safety Report 6503791-9 (Version None)
Quarter: 2009Q4

REPORT INFORMATION
  Report Type: 
  Country: None (occurrence: None)
  Receive Date: 20091217
  Receipt Date: 20091214
  Transmission Date: 20100525
  Serious: Yes (Other)
  Sender: FDA-Public Use
  Company Number: A0834968A

PATIENT
  Age: 4 Year
  Sex: Female

DRUGS (2)
  1. VENTOLIN [Suspect]
     Indication: ASTHMA
     Dosage: 2PUFF VARIABLE DOSE
     Route: 055
     Dates: start: 20090501
  2. PULMICORT [Concomitant]

REACTIONS (4)
  - ABNORMAL BEHAVIOUR [None]
  - HALLUCINATION [None]
  - HYPERHIDROSIS [None]
  - TACHYCARDIA [None]
